FAERS Safety Report 6263418-0 (Version None)
Quarter: 2009Q3

REPORT INFORMATION
  Report Type: 
  Country: None (occurrence: None)
  Receive Date: 20090710
  Receipt Date: 20090311
  Transmission Date: 20100115
  Serious: Yes (Other)
  Sender: FDA-Public Use
  Company Number: A0760441A

PATIENT
  Age: 67 Year
  Sex: Male

DRUGS (6)
  1. FLOVENT [Suspect]
     Indication: ASTHMA
     Dosage: 2PUFF TWICE PER DAY
     Route: 055
     Dates: start: 19970101
  2. PREDNISONE TAB [Concomitant]
  3. ERYTHROMYCIN [Concomitant]
  4. NASONEX [Concomitant]
  5. PRILOSEC [Concomitant]
  6. POTASSIUM CHLORIDE [Concomitant]

REACTIONS (3)
  - ASTHMA [None]
  - DYSPNOEA [None]
  - PRODUCT QUALITY ISSUE [None]
